FAERS Safety Report 6037803-6 (Version None)
Quarter: 2009Q1

REPORT INFORMATION
  Report Type: 
  Country: None (occurrence: None)
  Receive Date: 20090113
  Receipt Date: 20081222
  Transmission Date: 20090719
  Serious: Yes (Hospitalization, Other)
  Sender: FDA-Public Use
  Company Number: 134525

PATIENT
  Age: 52 Year
  Sex: Male
  Weight: 96 kg

DRUGS (9)
  1. NIPENT 10MG (PENTOSTATIN) [Suspect]
     Indication: HAIRY CELL LEUKAEMIA
     Dosage: 4 MG/M2, DAILY, INTRAVENOUS (NOT OTHERWISE SPECIFIED);
     Route: 042
     Dates: start: 20081205, end: 20081205
  2. BACTRIM [Concomitant]
  3. ZELITREX [Concomitant]
  4. SOLU-MEDROL [Concomitant]
  5. TOPALGIC [Concomitant]
  6. PRIMPERAN TAB [Concomitant]
  7. SPASFON [Concomitant]
  8. CEFUROXIME [Concomitant]
  9. CIPROFLOXACIN HYDROCHLORIDE [Concomitant]

REACTIONS (1)
  - TYPE IV HYPERSENSITIVITY REACTION [None]
